FAERS Safety Report 4627292-8 (Version None)
Quarter: 2005Q2

REPORT INFORMATION
  Report Type: 
  Country: None (occurrence: None)
  Receive Date: 20050405
  Receipt Date: 20050307
  Transmission Date: 20051028
  Serious: Yes (Other)
  Sender: FDA-Public Use
  Company Number: US-BOEHRINGER INGELHEIM PHARMACEUTICALS, INC.-2005-BP-03753BP

PATIENT

DRUGS (1)
  1. MIRAPEX [Suspect]
     Route: 048

REACTIONS (2)
  - COMA [None]
  - MENTAL DISORDER [None]
